FAERS Safety Report 9245652 (Version 2)
Quarter: 2013Q4

REPORT INFORMATION
  Report Type: Spontaneous
  Country: US (occurrence: US)
  Receive Date: 20130422
  Receipt Date: 20131104
  Transmission Date: 20140711
  Serious: Yes (Death, Hospitalization, Other)
  Sender: FDA-Public Use
  Company Number: US-009507513-1304USA008482

PATIENT
  Sex: Female
  Weight: 36.28 kg

DRUGS (2)
  1. JANUVIA [Suspect]
     Indication: TYPE 2 DIABETES MELLITUS
     Dosage: UNK
     Route: 048
     Dates: start: 20090401, end: 20100419
  2. ASPIRIN [Concomitant]
     Dosage: 81 MG, QD

REACTIONS (43)
  - Pancreatic carcinoma [Fatal]
  - Cholelithiasis [Unknown]
  - Bile duct stone [Unknown]
  - Metastases to lymph nodes [Unknown]
  - Biliary sphincterotomy [Unknown]
  - Hypokalaemia [Unknown]
  - Electrolyte imbalance [Unknown]
  - Hyponatraemia [Recovering/Resolving]
  - Device failure [Unknown]
  - Bile duct stent removal [Unknown]
  - Bile duct stent insertion [Unknown]
  - Constipation [Unknown]
  - Hyperglycaemia [Unknown]
  - Hypokalaemia [Unknown]
  - Dyspepsia [Unknown]
  - Clostridium difficile infection [Unknown]
  - Dysphagia [Unknown]
  - Abdominal distension [Unknown]
  - Musculoskeletal stiffness [Unknown]
  - Gastrooesophageal reflux disease [Unknown]
  - Hypocalcaemia [Unknown]
  - Tremor [Recovered/Resolved]
  - Pleural effusion [Unknown]
  - Hepatic steatosis [Unknown]
  - Portal vein thrombosis [Unknown]
  - Diverticulum [Unknown]
  - Local swelling [Unknown]
  - Tachycardia [Unknown]
  - Failure to thrive [Unknown]
  - Decreased appetite [Unknown]
  - Cachexia [Unknown]
  - Syncope [Unknown]
  - Gouty arthritis [Unknown]
  - Bronchitis [Unknown]
  - Haematochezia [Unknown]
  - Flat affect [Unknown]
  - Bursitis [Unknown]
  - Bile duct obstruction [Unknown]
  - Bradycardia [Unknown]
  - Pruritus [Unknown]
  - Spinal deformity [Unknown]
  - Upper respiratory tract infection [Unknown]
  - Back pain [Unknown]
